FAERS Safety Report 23846635 (Version 2)
Quarter: 2024Q2

REPORT INFORMATION
  Report Type: Spontaneous
  Country: US (occurrence: US)
  Receive Date: 20240513
  Receipt Date: 20240520
  Transmission Date: 20240715
  Serious: No
  Sender: FDA-Public Use
  Company Number: US-HALEON-2174198

PATIENT
  Age: 92 Year

DRUGS (1)
  1. TUMS ULTRA [Suspect]
     Active Substance: CALCIUM CARBONATE
     Indication: Product used for unknown indication
     Dosage: EXPDATE:202802EXPDATE:202802

REACTIONS (3)
  - Product storage error [Unknown]
  - Product quality issue [Unknown]
  - Poor quality product administered [Unknown]
